FAERS Safety Report 12549974 (Version 4)
Quarter: 2017Q1

REPORT INFORMATION
  Report Type: Spontaneous
  Country: JP (occurrence: JP)
  Receive Date: 20160712
  Receipt Date: 20170316
  Transmission Date: 20170428
  Serious: Yes (Other)
  Sender: FDA-Public Use
  Company Number: JP-MALLINCKRODT-T201602849

PATIENT
  Age: 56 Year
  Sex: Male
  Weight: 62 kg

DRUGS (43)
  1. METHADONE [Suspect]
     Active Substance: METHADONE HYDROCHLORIDE
     Dosage: 10 MG, 30 MG DAILY DOSE
     Route: 048
     Dates: start: 20150717, end: 20150720
  2. LYRICA [Concomitant]
     Active Substance: PREGABALIN
     Indication: ANALGESIC THERAPY
     Dosage: 150 MG
     Route: 048
     Dates: start: 20141008, end: 20150704
  3. LYRICA [Concomitant]
     Active Substance: PREGABALIN
     Dosage: 75 MG
     Route: 048
     Dates: start: 20150710, end: 20150715
  4. MAGMITT [Concomitant]
     Active Substance: MAGNESIUM OXIDE
     Dosage: 1980 MG
     Route: 048
     Dates: start: 20150617, end: 20150624
  5. NOVAMIN [Concomitant]
     Active Substance: PROCHLORPERAZINE MALEATE
     Dosage: 15 MG
     Route: 048
     Dates: start: 20150624, end: 20150629
  6. KETALAR [Concomitant]
     Active Substance: KETAMINE HYDROCHLORIDE
     Dosage: 72 MG
     Route: 051
     Dates: start: 20150928, end: 20151007
  7. METHADONE [Suspect]
     Active Substance: METHADONE HYDROCHLORIDE
     Indication: CANCER PAIN
     Dosage: 5 MG, 10 MG DAILY DOSE
     Route: 048
     Dates: start: 20150606, end: 20150608
  8. METHADONE [Suspect]
     Active Substance: METHADONE HYDROCHLORIDE
     Dosage: 20 MG, 40 MG DAILY DOSE
     Route: 048
     Dates: start: 20150618, end: 20150626
  9. LYRICA [Concomitant]
     Active Substance: PREGABALIN
     Dosage: 150 MG
     Route: 048
     Dates: start: 20150716, end: 20151003
  10. MAGLAX [Concomitant]
     Active Substance: MAGNESIUM OXIDE
     Dosage: 1980 MG
     Route: 048
     Dates: end: 20150616
  11. METHADONE [Suspect]
     Active Substance: METHADONE HYDROCHLORIDE
     Dosage: 15 MG, 30 MG DAILY DOSE
     Route: 048
     Dates: start: 20150612, end: 20150618
  12. METHADONE [Suspect]
     Active Substance: METHADONE HYDROCHLORIDE
     Dosage: 25 MG, 50 MG DAILY DOSE
     Route: 048
     Dates: start: 20150626, end: 20150704
  13. OXIFAST [Concomitant]
     Active Substance: OXYCODONE
     Indication: ANALGESIC THERAPY
     Dosage: 20-30 MG, PRN
     Route: 051
     Dates: start: 20150722
  14. REBAMIPIDE [Concomitant]
     Active Substance: REBAMIPIDE
     Dosage: 300 MG
     Route: 048
     Dates: start: 20130226, end: 20150704
  15. MORPHINE HYDROCHLORIDE [Concomitant]
     Active Substance: MORPHINE HYDROCHLORIDE
     Dosage: 240 MG
     Route: 051
     Dates: start: 20150709, end: 20150713
  16. MORPHINE HYDROCHLORIDE [Concomitant]
     Active Substance: MORPHINE HYDROCHLORIDE
     Dosage: 48 MG
     Route: 051
     Dates: start: 20150717, end: 20150721
  17. MORPHINE HYDROCHLORIDE [Concomitant]
     Active Substance: MORPHINE HYDROCHLORIDE
     Dosage: 144 MG
     Route: 051
     Dates: start: 20150922, end: 20150924
  18. MORPHINE HYDROCHLORIDE [Concomitant]
     Active Substance: MORPHINE HYDROCHLORIDE
     Dosage: 240 MG
     Route: 051
     Dates: start: 20150925, end: 20150930
  19. CELECOX [Concomitant]
     Active Substance: CELECOXIB
     Indication: ANALGESIC THERAPY
     Dosage: 400 MG
     Route: 048
     Dates: start: 20150710, end: 20151003
  20. KETALAR [Concomitant]
     Active Substance: KETAMINE HYDROCHLORIDE
     Indication: ANALGESIC THERAPY
     Dosage: 48 MG
     Route: 051
     Dates: start: 20150925, end: 20150927
  21. FENTANYL. [Concomitant]
     Active Substance: FENTANYL
     Indication: ANALGESIC THERAPY
     Dosage: 2.4 MG
     Route: 062
     Dates: start: 20150605, end: 20150608
  22. TS-1 [Concomitant]
     Active Substance: GIMERACIL\OTERACIL\TEGAFUR
     Dosage: 120 MG
     Route: 048
     Dates: start: 20150618, end: 20150620
  23. MOSAPRIDE CITRATE [Concomitant]
     Active Substance: MOSAPRIDE CITRATE
     Dosage: 15 MG
     Route: 048
     Dates: start: 20150709, end: 20151003
  24. LOXOPROFEN [Concomitant]
     Active Substance: LOXOPROFEN
     Indication: ANALGESIC THERAPY
     Dosage: 180 MG
     Route: 048
     Dates: start: 20130226, end: 20150710
  25. MAGMITT [Concomitant]
     Active Substance: MAGNESIUM OXIDE
     Dosage: 1980 MG
     Route: 048
     Dates: start: 20150715, end: 20151003
  26. CALONAL [Concomitant]
     Active Substance: ACETAMINOPHEN
     Dosage: 2400 MG
     Route: 048
     Dates: start: 20150804, end: 20151003
  27. ACELIO [Concomitant]
     Active Substance: ACETAMINOPHEN
     Indication: ANALGESIC THERAPY
     Dosage: 2400 MG
     Route: 051
     Dates: start: 20150710, end: 20150803
  28. METHADONE [Suspect]
     Active Substance: METHADONE HYDROCHLORIDE
     Dosage: 15 MG, 30 MG DAILY DOSE
     Route: 048
     Dates: start: 20150918, end: 20150921
  29. METHADONE [Suspect]
     Active Substance: METHADONE HYDROCHLORIDE
     Dosage: 15 MG, 15 MG DAILY DOSE
     Route: 048
     Dates: start: 20150922, end: 20150924
  30. FENTANYL. [Concomitant]
     Active Substance: FENTANYL
     Dosage: 1.2 MG
     Route: 062
     Dates: start: 20150608, end: 20150611
  31. MORPHINE HYDROCHLORIDE [Concomitant]
     Active Substance: MORPHINE HYDROCHLORIDE
     Indication: ANALGESIC THERAPY
     Dosage: 48 MG
     Route: 051
     Dates: start: 20150706, end: 20150706
  32. MORPHINE HYDROCHLORIDE [Concomitant]
     Active Substance: MORPHINE HYDROCHLORIDE
     Dosage: 144 MG
     Route: 051
     Dates: start: 20150714, end: 20150716
  33. MORPHINE HYDROCHLORIDE [Concomitant]
     Active Substance: MORPHINE HYDROCHLORIDE
     Dosage: 288 MG
     Route: 051
     Dates: start: 20151001, end: 20151007
  34. METHADONE [Suspect]
     Active Substance: METHADONE HYDROCHLORIDE
     Dosage: 5 MG, 15 MG DAILY DOSE
     Route: 048
     Dates: start: 20150714, end: 20150716
  35. METHADONE [Suspect]
     Active Substance: METHADONE HYDROCHLORIDE
     Dosage: 15 MG, 45 MG DAILY DOSE
     Route: 048
     Dates: start: 20150721, end: 20150917
  36. OXINORM [Concomitant]
     Active Substance: OXYCODONE HYDROCHLORIDE
     Indication: ANALGESIC THERAPY
     Dosage: 40 MG, PRN
     Route: 048
     Dates: start: 20150605
  37. LANSOPRAZOLE. [Concomitant]
     Active Substance: LANSOPRAZOLE
     Dosage: 15 MG
     Route: 048
     Dates: start: 20140522, end: 20150617
  38. CALONAL [Concomitant]
     Active Substance: ACETAMINOPHEN
     Indication: ANALGESIC THERAPY
     Dosage: 2400 MG
     Route: 048
     Dates: start: 20150615, end: 20150704
  39. MORPHINE HYDROCHLORIDE [Concomitant]
     Active Substance: MORPHINE HYDROCHLORIDE
     Dosage: 144 MG
     Route: 051
     Dates: start: 20150707, end: 20150708
  40. METHADONE [Suspect]
     Active Substance: METHADONE HYDROCHLORIDE
     Dosage: 10 MG, 20 MG DAILY DOSE
     Route: 048
     Dates: start: 20150609, end: 20150612
  41. OPSO [Concomitant]
     Active Substance: MORPHINE HYDROCHLORIDE
     Indication: ANALGESIC THERAPY
     Dosage: 40 MG, PRN
     Route: 048
     Dates: start: 20150612
  42. MORPHINE HYDROCHLORIDE [Concomitant]
     Active Substance: MORPHINE HYDROCHLORIDE
     Dosage: 72 MG
     Route: 051
     Dates: start: 20150919, end: 20150921
  43. ZYPREXA [Concomitant]
     Active Substance: OLANZAPINE
     Dosage: 5 MG
     Route: 048
     Dates: start: 20150708, end: 20151003

REACTIONS (2)
  - Pneumonia [Recovering/Resolving]
  - Oropharyngeal pain [Not Recovered/Not Resolved]

NARRATIVE: CASE EVENT DATE: 20150628
